FAERS Safety Report 10800417 (Version 1)
Quarter: 2015Q1

REPORT INFORMATION
  Report Type: Spontaneous
  Country: US (occurrence: US)
  Receive Date: 20150216
  Receipt Date: 20150216
  Transmission Date: 20150721
  Serious: No
  Sender: FDA-Public Use
  Company Number: US-ALLERGAN-1412939US

PATIENT
  Age: 50 Year
  Sex: Female

DRUGS (3)
  1. RESTASIS [Suspect]
     Active Substance: CYCLOSPORINE
     Indication: DRY EYE
     Dosage: 2 GTT, UNK
  2. REFRESH P.M. [Concomitant]
     Active Substance: MINERAL OIL\PETROLATUM
     Indication: DRY EYE
     Dosage: UNK UNK, QHS
     Route: 047
  3. RESTASIS [Suspect]
     Active Substance: CYCLOSPORINE
     Dosage: 2 GTT, BID
     Route: 047
     Dates: start: 20131029

REACTIONS (7)
  - Eye irritation [Not Recovered/Not Resolved]
  - Inappropriate schedule of drug administration [Unknown]
  - Vision blurred [Recovered/Resolved]
  - Headache [Recovered/Resolved]
  - Wrong technique in drug usage process [Unknown]
  - Burning sensation [Not Recovered/Not Resolved]
  - Pain [Recovered/Resolved]
